FAERS Safety Report 16148139 (Version 1)
Quarter: 2019Q2

REPORT INFORMATION
  Report Type: Report from Study
  Country: US (occurrence: US)
  Receive Date: 20190402
  Receipt Date: 20190402
  Transmission Date: 20190711
  Serious: Yes (Hospitalization)
  Sender: FDA-Public Use
  Company Number: US-BAYER-2019-058951

PATIENT
  Age: 50 Year
  Sex: Female

DRUGS (2)
  1. BACLOFEN. [Concomitant]
     Active Substance: BACLOFEN
  2. BETASERON [Suspect]
     Active Substance: INTERFERON BETA-1B
     Indication: RELAPSING-REMITTING MULTIPLE SCLEROSIS
     Dosage: UNK
     Dates: start: 19940803, end: 20130911

REACTIONS (2)
  - Localised infection [Not Recovered/Not Resolved]
  - Mass [None]

NARRATIVE: CASE EVENT DATE: 20130911
